FAERS Safety Report 13346999 (Version 1)
Quarter: 2017Q1

REPORT INFORMATION
  Report Type: Spontaneous
  Country: BE (occurrence: BE)
  Receive Date: 20170317
  Receipt Date: 20170317
  Transmission Date: 20170428
  Serious: Yes (Life-Threatening)
  Sender: FDA-Public Use
  Company Number: BE-SA-2017SA042656

PATIENT
  Age: 59 Year
  Sex: Female

DRUGS (8)
  1. DUROGESIC [Concomitant]
     Active Substance: FENTANYL
     Indication: PAIN
     Dosage: 12.5 MCG/ HOUR, 1X1/4 DAYS?ROUTE: TRANSCUTANEOUS
  2. MERONEM [Concomitant]
     Active Substance: MEROPENEM
     Indication: INFECTION
     Route: 042
     Dates: start: 20160621, end: 20160801
  3. FASTURTEC [Suspect]
     Active Substance: RASBURICASE
     Indication: TUMOUR LYSIS SYNDROME
     Route: 042
     Dates: start: 20160723, end: 20160723
  4. BLINATUMOMAB [Concomitant]
     Active Substance: BLINATUMOMAB
     Indication: ACUTE LYMPHOCYTIC LEUKAEMIA
     Route: 042
     Dates: start: 20160613
  5. PETHIDINE [Concomitant]
     Active Substance: MEPERIDINE
     Indication: CHILLS
     Route: 042
     Dates: start: 20160623, end: 20160623
  6. AMUKIN [Concomitant]
     Active Substance: AMIKACIN SULFATE
     Indication: PYREXIA
     Route: 042
  7. VALACICLOVIR [Concomitant]
     Active Substance: VALACYCLOVIR HYDROCHLORIDE
     Route: 048
  8. FASTURTEC [Suspect]
     Active Substance: RASBURICASE
     Indication: TUMOUR LYSIS SYNDROME
     Route: 042
     Dates: start: 20160724, end: 20160724

REACTIONS (5)
  - Dyspnoea [Recovered/Resolved]
  - Hypotension [Recovered/Resolved]
  - Tachycardia [Recovered/Resolved]
  - Blood lactic acid increased [Recovered/Resolved]
  - Pyrexia [Recovered/Resolved]

NARRATIVE: CASE EVENT DATE: 20160723
